FAERS Safety Report 5005227-6 (Version None)
Quarter: 2006Q2

REPORT INFORMATION
  Report Type: 
  Country: None (occurrence: None)
  Receive Date: 20060515
  Receipt Date: 20060508
  Transmission Date: 20061013
  Serious: Yes (Other)
  Sender: FDA-Public Use
  Company Number: 2006061367

PATIENT
  Sex: Male
  Weight: 99.7913 kg

DRUGS (5)
  1. LIPITOR [Suspect]
     Indication: BLOOD CHOLESTEROL INCREASED
     Dosage: 10 MG (10 MG, 1 IN 1 D), ORAL
     Route: 048
  2. LOPRESSOR [Suspect]
     Indication: ILL-DEFINED DISORDER
  3. ALTACE [Concomitant]
  4. ASPIRIN [Concomitant]
  5. NIACIN [Concomitant]

REACTIONS (5)
  - CORONARY ARTERY OCCLUSION [None]
  - FEELING ABNORMAL [None]
  - LABORATORY TEST ABNORMAL [None]
  - LIVER FUNCTION TEST ABNORMAL [None]
  - MYALGIA [None]
